FAERS Safety Report 7397869-8 (Version None)
Quarter: 2011Q2

REPORT INFORMATION
  Report Type: 
  Country: None (occurrence: None)
  Receive Date: 20110401
  Receipt Date: 20110401
  Transmission Date: 20111010
  Serious: Yes (Hospitalization)
  Sender: FDA-Public Use
  Company Number: None

PATIENT
  Sex: Male
  Weight: 90.6 kg

DRUGS (3)
  1. BEVACIZUMAB LAST DOSE 02/22/2011 1320MG [Suspect]
     Indication: PROSTATE CANCER
     Dosage: 15MG/KG Q 21 DAYS IV
     Route: 042
     Dates: start: 20101005, end: 20110222
  2. DOCETAXEL [Suspect]
     Indication: PROSTATE CANCER
     Dosage: 65MG/M2 Q 21 DAYS IV
     Route: 042
     Dates: start: 20101005, end: 20110222
  3. RAD 001 LAST DOSE 02/21/2011 [Suspect]
     Indication: PROSTATE CANCER
     Dosage: 2.5MG DAILY PO
     Route: 048
     Dates: start: 20101006, end: 20110221

REACTIONS (5)
  - PNEUMONITIS [None]
  - PROCEDURAL COMPLICATION [None]
  - BRONCHIAL HYPERREACTIVITY [None]
  - PNEUMOTHORAX [None]
  - IATROGENIC INJURY [None]
